FAERS Safety Report 7786650-3 (Version None)
Quarter: 2011Q3

REPORT INFORMATION
  Report Type: 
  Country: None (occurrence: None)
  Receive Date: 20110929
  Receipt Date: 20110927
  Transmission Date: 20111222
  Serious: Yes (Death, Hospitalization)
  Sender: FDA-Public Use
  Company Number: US-PFIZER INC-2008036890

PATIENT
  Sex: Male
  Weight: 86 kg

DRUGS (14)
  1. CHANTIX [Suspect]
     Indication: NICOTINE DEPENDENCE
     Dosage: UNK
     Dates: start: 20080401, end: 20080407
  2. PREDNISONE [Concomitant]
     Dosage: UNK
  3. LIPITOR [Concomitant]
     Dosage: UNK
  4. COREG [Concomitant]
     Dosage: UNK
  5. ATARAX [Concomitant]
     Dosage: UNK
  6. COGENTIN [Concomitant]
     Dosage: UNK
  7. DIGOXIN [Concomitant]
     Dosage: UNK
  8. LASIX [Concomitant]
     Dosage: UNK
  9. CHANTIX [Suspect]
     Indication: CHRONIC OBSTRUCTIVE PULMONARY DISEASE
  10. STELAZINE [Concomitant]
     Dosage: UNK
  11. CHANTIX [Suspect]
     Indication: SMOKING CESSATION THERAPY
  12. VALSARTAN [Concomitant]
     Dosage: UNK
  13. LEVAQUIN [Concomitant]
     Dosage: UNK
  14. SPIRONOLACTONE [Concomitant]
     Dosage: UNK

REACTIONS (2)
  - ANXIETY [None]
  - COMPLETED SUICIDE [None]
